FAERS Safety Report 6519610-0 (Version None)
Quarter: 2009Q4

REPORT INFORMATION
  Report Type: 
  Country: None (occurrence: None)
  Receive Date: 20091228
  Receipt Date: 20091214
  Transmission Date: 20100525
  Serious: Yes (Life-Threatening)
  Sender: FDA-Public Use
  Company Number: DE-MYLANLABS-2009S1021461

PATIENT
  Age: 43 Year
  Sex: Male
  Weight: 70 kg

DRUGS (5)
  1. DICLOFENAC [Suspect]
     Indication: DRUG USE FOR UNKNOWN INDICATION
     Dates: start: 20091012
  2. ALLOPURINOL [Suspect]
     Indication: DRUG USE FOR UNKNOWN INDICATION
     Dates: start: 20091012
  3. QUENSYL [Suspect]
     Indication: SYSTEMIC LUPUS ERYTHEMATOSUS
     Dosage: DAILY DOSE: 500 MG MILLGRAM(S) EVERY DAYS
     Dates: start: 20090801
  4. TRAMAL [Suspect]
     Indication: PAIN
     Dates: start: 20091012
  5. NOVALGIN [Suspect]
     Indication: PAIN
     Dates: start: 20091012

REACTIONS (3)
  - BLISTER [None]
  - ECZEMA [None]
  - ENANTHEMA [None]
